FAERS Safety Report 23311989 (Version 1)
Quarter: 2023Q4

REPORT INFORMATION
  Report Type: Spontaneous
  Country: JP (occurrence: JP)
  Receive Date: 20231219
  Receipt Date: 20231219
  Transmission Date: 20240110
  Serious: Yes (Other)
  Sender: FDA-Public Use
  Company Number: JP-ALKEM LABORATORIES LIMITED-JP-ALKEM-2023-15709

PATIENT
  Age: 57 Year
  Sex: Female

DRUGS (1)
  1. FOSFOMYCIN [Interacting]
     Active Substance: FOSFOMYCIN
     Indication: Staphylococcal bacteraemia
     Dosage: 2 GRAM, QID (EVERY 6 H MINIMAL INHIBITORY CONCENTRATION LESS THAN OR EQUAL TO 32 MICROGRAM/MILLIGRAM
     Route: 065

REACTIONS (3)
  - Cardiac failure [Unknown]
  - Oedema peripheral [Unknown]
  - Pleural effusion [Unknown]
